FAERS Safety Report 13884322 (Version 1)
Quarter: 2017Q3

REPORT INFORMATION
  Report Type: Report from Study
  Country: MY (occurrence: MY)
  Receive Date: 20170821
  Receipt Date: 20170821
  Transmission Date: 20171127
  Serious: Yes (Hospitalization, Other)
  Sender: FDA-Public Use
  Company Number: MY-ROCHE-1977556

PATIENT

DRUGS (3)
  1. RIBAVIRIN. [Suspect]
     Active Substance: RIBAVIRIN
     Indication: CHRONIC HEPATITIS C
     Dosage: 800MG DAILY AND IN LATER PART OF THE STUDY PERIOD, 15 MCG/KG/DAY FOR OBESE PATIENTS AND FOR GENOTYPE
     Route: 048
  2. PEGINTERFERON ALFA-2B [Suspect]
     Active Substance: PEGINTERFERON ALFA-2B
     Indication: CHRONIC HEPATITIS C
     Dosage: IN DIALYSIS PATIENTS, DOSE WAS REDUCED TO 1.0 UG WEEKLY
     Route: 058
  3. PEG-INTERFERON ALFA 2A [Suspect]
     Active Substance: PEGINTERFERON ALFA-2A
     Indication: CHRONIC HEPATITIS C
     Dosage: IN DIALYSIS PATIENTS, DOSE WAS REDUCED TO 135 UG WEEKLY
     Route: 058

REACTIONS (31)
  - Lethargy [Unknown]
  - Irritability [Unknown]
  - Chest pain [Unknown]
  - Infection [Unknown]
  - Fatigue [Unknown]
  - Dry skin [Recovering/Resolving]
  - Palpitations [Unknown]
  - Vision blurred [Unknown]
  - Thrombocytopenia [Unknown]
  - Hallucination [Unknown]
  - Anger [Unknown]
  - Dermatitis [Recovering/Resolving]
  - Decreased appetite [Unknown]
  - Mood swings [Unknown]
  - Alopecia [Recovering/Resolving]
  - Pruritus [Recovering/Resolving]
  - Cough [Unknown]
  - Neutropenia [Unknown]
  - Hepatitis [Recovered/Resolved]
  - Arthralgia [Unknown]
  - Dysgeusia [Unknown]
  - Anaemia [Unknown]
  - Myalgia [Unknown]
  - Dizziness [Unknown]
  - Nausea [Unknown]
  - Schizophrenia [Unknown]
  - Suicidal ideation [Unknown]
  - Rash [Recovering/Resolving]
  - Headache [Unknown]
  - Weight decreased [Unknown]
  - Depression [Unknown]
